FAERS Safety Report 9905447 (Version 1)
Quarter: 2014Q1

REPORT INFORMATION
  Report Type: Report from Study
  Country: US (occurrence: US)
  Receive Date: 20140218
  Receipt Date: 20140218
  Transmission Date: 20141002
  Serious: Yes (Hospitalization, Other)
  Sender: FDA-Public Use
  Company Number: US-ALEXION PHARMACEUTICALS INC.-A201102149

PATIENT
  Sex: 0

DRUGS (1)
  1. SOLIRIS [Suspect]
     Indication: HAEMOLYTIC URAEMIC SYNDROME
     Dosage: UNK
     Route: 042

REACTIONS (6)
  - Dialysis [Not Recovered/Not Resolved]
  - Intra-abdominal haematoma [Unknown]
  - Hypertension [Not Recovered/Not Resolved]
  - Fatigue [Unknown]
  - Fungal infection [Unknown]
  - Bacterial infection [Unknown]
